FAERS Safety Report 7220807-5 (Version None)
Quarter: 2011Q1

REPORT INFORMATION
  Report Type: 
  Country: None (occurrence: None)
  Receive Date: 20110112
  Receipt Date: 20110105
  Transmission Date: 20110831
  Serious: Yes (Other)
  Sender: FDA-Public Use
  Company Number: 2007BI001108

PATIENT
  Age: 64 Year
  Sex: Female
  Weight: 81 kg

DRUGS (3)
  1. AVONEX [Suspect]
     Route: 030
     Dates: start: 20030101
  2. AROMASIN [Concomitant]
     Indication: BREAST CANCER
  3. AVONEX [Suspect]
     Indication: MULTIPLE SCLEROSIS
     Route: 030
     Dates: start: 20000601, end: 20030101

REACTIONS (3)
  - BREAST CANCER [None]
  - BREAST DISORDER [None]
  - BENIGN BREAST NEOPLASM [None]
